FAERS Safety Report 14482453 (Version 1)
Quarter: 2018Q1

REPORT INFORMATION
  Report Type: Spontaneous
  Country: FR (occurrence: FR)
  Receive Date: 20180202
  Receipt Date: 20180202
  Transmission Date: 20180509
  Serious: Yes (Other)
  Sender: FDA-Public Use
  Company Number: FR-009507513-1801FRA014242

PATIENT
  Age: 63 Year
  Sex: Male

DRUGS (1)
  1. VELMETIA [Suspect]
     Active Substance: METFORMIN\SITAGLIPTIN
     Indication: PRODUCT USED FOR UNKNOWN INDICATION
     Dosage: 2/DAILY
     Route: 065

REACTIONS (4)
  - Hyperkalaemia [Unknown]
  - Acute kidney injury [Unknown]
  - Hyperlactacidaemia [Unknown]
  - Atrioventricular block complete [Unknown]
